FAERS Safety Report 20307570 (Version 2)
Quarter: 2022Q1

REPORT INFORMATION
  Report Type: Report from Study
  Country: BR (occurrence: BR)
  Receive Date: 20220107
  Receipt Date: 20220322
  Transmission Date: 20220423
  Serious: Yes (Hospitalization, Other)
  Sender: FDA-Public Use
  Company Number: BR-NOVARTISPH-PHHY2017BR105474

PATIENT
  Age: 59 Year
  Sex: Female
  Weight: 58 kg

DRUGS (11)
  1. AMLODIPINE\VALSARTAN [Suspect]
     Active Substance: AMLODIPINE\VALSARTAN
     Indication: Hypertension
     Dosage: 1 DOSAGE FORM, QD, (AMLODIPINE 10/VALSARTAN 320 MG)
     Route: 048
  2. AMLODIPINE\VALSARTAN [Suspect]
     Active Substance: AMLODIPINE\VALSARTAN
     Dosage: 1 DOSAGE FORM, QOD,  (AMLODIPINE 10/VALSARTAN 320 MG)
     Route: 048
  3. AMLODIPINE\VALSARTAN [Suspect]
     Active Substance: AMLODIPINE\VALSARTAN
     Dosage: (AMLODIPINE 5 MG/VALSARTAN 320 MG), QD
     Route: 065
  4. AMLODIPINE\VALSARTAN [Suspect]
     Active Substance: AMLODIPINE\VALSARTAN
     Dosage: UNK
     Route: 065
  5. AMLODIPINE\VALSARTAN [Suspect]
     Active Substance: AMLODIPINE\VALSARTAN
     Dosage: UNK, (AMLODIPINE 5MG/VALSARTAN 320 MG)
     Route: 065
  6. AMLODIPINE\VALSARTAN [Suspect]
     Active Substance: AMLODIPINE\VALSARTAN
     Dosage: UNK, (AMLODIPINE 10/VALSARTAN 320 MG), STARTED 8 YEARS AGO
     Route: 065
  7. AMLODIPINE\VALSARTAN [Suspect]
     Active Substance: AMLODIPINE\VALSARTAN
     Dosage: UNK, (AMLODIPINE 10/VALSARTAN 320 MG), STARTED 10 YEARS AGOUNK
     Route: 065
  8. DIOVAN [Suspect]
     Active Substance: VALSARTAN
     Indication: Hypertension
     Dosage: 320 MG, QD
     Route: 048
  9. DIOVAN [Suspect]
     Active Substance: VALSARTAN
     Dosage: UNK, (STARTED 10 YEARS AGO)
     Route: 065
  10. ADIPEPT [Concomitant]
     Indication: Product used for unknown indication
     Dosage: UNK
     Route: 065
  11. ATENOLOL\CHLORTHALIDONE [Concomitant]
     Active Substance: ATENOLOL\CHLORTHALIDONE
     Indication: Product used for unknown indication
     Dosage: UNK, (50MG/12), (STARTED 10 YEARS AGO)
     Route: 065

REACTIONS (34)
  - Blood pressure increased [Recovered/Resolved]
  - Blood pressure increased [Recovered/Resolved]
  - Blood pressure fluctuation [Unknown]
  - Blood pressure increased [Recovered/Resolved]
  - Blood pressure increased [Unknown]
  - Blood pressure increased [Recovered/Resolved]
  - Dry mouth [Not Recovered/Not Resolved]
  - Headache [Unknown]
  - Anxiety [Not Recovered/Not Resolved]
  - Fear [Not Recovered/Not Resolved]
  - Nightmare [Not Recovered/Not Resolved]
  - Insomnia [Not Recovered/Not Resolved]
  - Feeling abnormal [Not Recovered/Not Resolved]
  - Erythema [Recovered/Resolved]
  - Malaise [Recovered/Resolved]
  - Incorrect dose administered [Unknown]
  - Fatigue [Unknown]
  - Depression [Unknown]
  - Vomiting [Unknown]
  - Crying [Not Recovered/Not Resolved]
  - Urinary incontinence [Unknown]
  - Dysphagia [Not Recovered/Not Resolved]
  - Discomfort [Not Recovered/Not Resolved]
  - Dyspnoea [Unknown]
  - Musculoskeletal discomfort [Unknown]
  - Memory impairment [Unknown]
  - Panic disorder [Unknown]
  - Abdominal pain upper [Unknown]
  - Peripheral swelling [Unknown]
  - Blood pressure decreased [Unknown]
  - Hypoaesthesia [Unknown]
  - Paraesthesia [Unknown]
  - Drug ineffective [Unknown]
  - Inappropriate schedule of product administration [Recovered/Resolved]

NARRATIVE: CASE EVENT DATE: 20160501
